FAERS Safety Report 7428883-1 (Version None)
Quarter: 2011Q2

REPORT INFORMATION
  Report Type: 
  Country: None (occurrence: None)
  Receive Date: 20110421
  Receipt Date: 20110413
  Transmission Date: 20111010
  Serious: Yes (Hospitalization)
  Sender: FDA-Public Use
  Company Number: US-B.I. PHARMACEUTICALS,INC./RIDGEFIELD-2010-BP-05851BP

PATIENT
  Sex: Male

DRUGS (8)
  1. FLOMAX [Suspect]
     Indication: POLLAKIURIA
     Dosage: 0.4 MG
     Route: 048
     Dates: start: 20100201
  2. DIOVAN [Concomitant]
  3. FELODIPINE [Concomitant]
  4. LEVOTHYROXINE SODIUM [Concomitant]
  5. CALCITRIOL [Concomitant]
  6. ZOLPIDEM [Concomitant]
  7. ZOLADEX [Concomitant]
  8. LIPITOR [Concomitant]

REACTIONS (5)
  - SOMNOLENCE [None]
  - DIZZINESS [None]
  - DRUG INEFFECTIVE [None]
  - NOCTURIA [None]
  - CEREBROVASCULAR ACCIDENT [None]
